FAERS Safety Report 21604451 (Version 1)
Quarter: 2022Q4

REPORT INFORMATION
  Report Type: Spontaneous
  Country: PT (occurrence: PT)
  Receive Date: 20221116
  Receipt Date: 20221116
  Transmission Date: 20230113
  Serious: Yes (Hospitalization, Other)
  Sender: FDA-Public Use
  Company Number: PT-UCBSA-2022065448

PATIENT
  Age: 65 Year
  Sex: Male

DRUGS (2)
  1. LEVETIRACETAM [Suspect]
     Active Substance: LEVETIRACETAM
     Indication: Product used for unknown indication
     Dosage: UNK
  2. CARBAMAZEPINE [Suspect]
     Active Substance: CARBAMAZEPINE
     Indication: Product used for unknown indication
     Dosage: 1.6 GRAM, QD

REACTIONS (4)
  - Epilepsy [Recovered/Resolved]
  - Toxicity to various agents [Recovered/Resolved]
  - Vertigo [Recovered/Resolved]
  - Fall [Recovered/Resolved]
